FAERS Safety Report 4452002-7 (Version None)
Quarter: 2004Q3

REPORT INFORMATION
  Report Type: 
  Country: None (occurrence: None)
  Receive Date: 20040915
  Receipt Date: 20040915
  Transmission Date: 20050211
  Serious: Yes (Hospitalization)
  Sender: FDA-Public Use
  Company Number: None

PATIENT
  Sex: Male

DRUGS (4)
  1. LANTUS [Suspect]
     Indication: DIABETES MELLITUS
     Dosage: PRIOR TO ADMISSION
  2. ACCUPRIL [Concomitant]
  3. COREG [Concomitant]
  4. PLAVIX [Concomitant]

REACTIONS (2)
  - BLOOD GLUCOSE DECREASED [None]
  - COMA [None]
